FAERS Safety Report 7320780-5 (Version None)
Quarter: 2011Q1

REPORT INFORMATION
  Report Type: 
  Country: None (occurrence: None)
  Receive Date: 20110228
  Receipt Date: 20110222
  Transmission Date: 20110831
  Serious: Yes (Death)
  Sender: FDA-Public Use
  Company Number: JP-ROCHE-755439

PATIENT
  Sex: Male

DRUGS (1)
  1. CELLCEPT [Suspect]
     Route: 048

REACTIONS (2)
  - CARDIOGENIC SHOCK [None]
  - HAEMODIALYSIS COMPLICATION [None]
